FAERS Safety Report 9055116 (Version 1)
Quarter: 2013Q1

REPORT INFORMATION
  Report Type: Spontaneous
  Country: US (occurrence: US)
  Receive Date: 20130206
  Receipt Date: 20130206
  Transmission Date: 20140127
  Serious: No
  Sender: FDA-Public Use
  Company Number: US-B.I. PHARMACEUTICALS,INC./RIDGEFIELD-2013-BI-03086BP

PATIENT
  Sex: 0

DRUGS (1)
  1. PRADAXA [Suspect]
     Dosage: 300 MG
     Route: 048

REACTIONS (3)
  - Head injury [Unknown]
  - Fall [Unknown]
  - Road traffic accident [Unknown]
